FAERS Safety Report 13232360 (Version 1)
Quarter: 2017Q1

REPORT INFORMATION
  Report Type: Spontaneous
  Country: US (occurrence: US)
  Receive Date: 20170214
  Receipt Date: 20170214
  Transmission Date: 20170428
  Serious: No
  Sender: FDA-Public Use
  Company Number: US-AMGEN-USASP2016183218

PATIENT
  Age: 69 Year
  Sex: Female

DRUGS (2)
  1. NEULASTA [Suspect]
     Active Substance: PEGFILGRASTIM
     Indication: NEUTROPENIA
     Dosage: 6 MG, UNK
     Route: 065
     Dates: start: 20161222
  2. CLARITIN [Concomitant]
     Active Substance: LORATADINE
     Dosage: UNK
     Dates: start: 20161222

REACTIONS (14)
  - Tremor [Recovering/Resolving]
  - Fatigue [Unknown]
  - Asthenia [Unknown]
  - Nasopharyngitis [Unknown]
  - Nausea [Recovering/Resolving]
  - Influenza [Unknown]
  - Malaise [Unknown]
  - Respiratory tract congestion [Unknown]
  - Pain [Unknown]
  - Blood count abnormal [Unknown]
  - Epistaxis [Unknown]
  - Pyrexia [Unknown]
  - Feeling abnormal [Unknown]
  - Application site discomfort [Unknown]

NARRATIVE: CASE EVENT DATE: 20161224
